FAERS Safety Report 8993759 (Version 1)
Quarter: 2013Q1

REPORT INFORMATION
  Report Type: Spontaneous
  Country: US (occurrence: US)
  Receive Date: 20130102
  Receipt Date: 20130102
  Transmission Date: 20140127
  Serious: No
  Sender: FDA-Public Use
  Company Number: US-AMGEN-USASP2012084077

PATIENT
  Age: 59 Year
  Sex: Female

DRUGS (2)
  1. ENBREL [Suspect]
     Indication: PSORIATIC ARTHROPATHY
     Dosage: 50 MG, WEEKLY
     Dates: start: 20120205
  2. METHOTREXATE [Concomitant]
     Dosage: 25 UNK, UNK
     Dates: start: 201110

REACTIONS (3)
  - Pyrexia [Recovered/Resolved]
  - Arthritis [Not Recovered/Not Resolved]
  - Lymphadenopathy [Recovered/Resolved]
